FAERS Safety Report 5094277-X (Version None)
Quarter: 2006Q3

REPORT INFORMATION
  Report Type: 
  Country: None (occurrence: None)
  Receive Date: 20060831
  Receipt Date: 20060830
  Transmission Date: 20061208
  Serious: Yes (Other)
  Sender: FDA-Public Use
  Company Number: NO-GLAXOSMITHKLINE-B0436473A

PATIENT
  Sex: Male
  Weight: 130 kg

DRUGS (1)
  1. AVANDIA [Suspect]
     Route: 065
     Dates: start: 20010101

REACTIONS (3)
  - DRUG INEFFECTIVE [None]
  - MACULAR OEDEMA [None]
  - RETINOPATHY [None]
